FAERS Safety Report 5383453-4 (Version None)
Quarter: 2007Q3

REPORT INFORMATION
  Report Type: 
  Country: None (occurrence: None)
  Receive Date: 20070710
  Receipt Date: 20070703
  Transmission Date: 20080115
  Serious: Yes (Hospitalization, Disabling)
  Sender: FDA-Public Use
  Company Number: JP-BOEHRINGER INGELHEIM PHARMACEUTICALS, INC.-2007-BP-16610NB

PATIENT
  Sex: Male
  Weight: 86 kg

DRUGS (3)
  1. MICARDIS [Suspect]
     Indication: HYPERTENSION
     Route: 048
     Dates: start: 20060607
  2. AMIYU (MIXED AMINO ACID PREPARATIONS) [Concomitant]
     Route: 048
     Dates: start: 20070304
  3. PERSANTIN [Concomitant]
     Route: 048
     Dates: start: 20070305

REACTIONS (1)
  - VITREOUS HAEMORRHAGE [None]
